FAERS Safety Report 17580979 (Version 1)
Quarter: 2020Q1

REPORT INFORMATION
  Report Type: Spontaneous
  Country: US (occurrence: US)
  Receive Date: 20200325
  Receipt Date: 20200325
  Transmission Date: 20200409
  Serious: No
  Sender: FDA-Public Use
  Company Number: US-BRECKENRIDGE PHARMACEUTICAL, INC.-2081965

PATIENT
  Age: 72 Year
  Sex: Male
  Weight: 77.27 kg

DRUGS (4)
  1. AZELASTINE HYDROCHLORIDE. [Suspect]
     Active Substance: AZELASTINE HYDROCHLORIDE
     Indication: NASOPHARYNGITIS
     Route: 045
  2. MEDROL [Concomitant]
     Active Substance: METHYLPREDNISOLONE
  3. BENZONATATE. [Concomitant]
     Active Substance: BENZONATATE
  4. ZITHROMAX [Concomitant]
     Active Substance: AZITHROMYCIN DIHYDRATE

REACTIONS (2)
  - Paraesthesia [None]
  - Chest pain [None]
